FAERS Safety Report 7448078-5 (Version None)
Quarter: 2011Q2

REPORT INFORMATION
  Report Type: 
  Country: None (occurrence: None)
  Receive Date: 20110429
  Receipt Date: 20100623
  Transmission Date: 20111010
  Serious: No
  Sender: FDA-Public Use
  Company Number: US-ASTRAZENECA-2009SE24875

PATIENT
  Age: 65 Year
  Sex: Male

DRUGS (2)
  1. ANTACID TAB [Concomitant]
  2. NEXIUM [Suspect]
     Indication: GASTROOESOPHAGEAL REFLUX DISEASE
     Dosage: ONES TO TWICE DAILY DOSE
     Route: 048
     Dates: start: 20080801

REACTIONS (4)
  - GASTROOESOPHAGEAL REFLUX DISEASE [None]
  - DRUG DOSE OMISSION [None]
  - ARTHRALGIA [None]
  - INCORRECT DOSE ADMINISTERED [None]
